FAERS Safety Report 13942842 (Version 1)
Quarter: 2017Q3

REPORT INFORMATION
  Report Type: Spontaneous
  Country: US (occurrence: US)
  Receive Date: 20170907
  Receipt Date: 20170907
  Transmission Date: 20171127
  Serious: Yes (Other)
  Sender: FDA-Public Use
  Company Number: US-JNJCP-30000403773

PATIENT
  Age: 20 Year
  Sex: Female

DRUGS (1)
  1. JOHNSONS BABY PURE CORNSTARCH MEDICATED [Suspect]
     Active Substance: ZINC OXIDE
     Indication: PRODUCT USED FOR UNKNOWN INDICATION
     Dosage: TO SPRINKLE IT ON PANTY LINERS AND EVEN MENSTRUAL PADS FROM THE TIME SHE STARTED HAVING PERIODS
     Route: 061

REACTIONS (1)
  - Ovarian cancer stage IV [Not Recovered/Not Resolved]
